FAERS Safety Report 7079466-7 (Version None)
Quarter: 2010Q4

REPORT INFORMATION
  Report Type: 
  Country: None (occurrence: None)
  Receive Date: 20101102
  Receipt Date: 20101026
  Transmission Date: 20110411
  Serious: Yes (Other)
  Sender: FDA-Public Use
  Company Number: CA-ABBOTT-10P-028-0679578-00

PATIENT
  Sex: Female

DRUGS (12)
  1. HUMIRA [Suspect]
     Indication: RHEUMATOID ARTHRITIS
     Route: 058
     Dates: start: 20061026
  2. METHOTREXATE SODIUM [Suspect]
     Indication: PRODUCT USED FOR UNKNOWN INDICATION
     Dosage: 25 MG/1ML ONCE WEEKLY
     Route: 058
  3. METHOTREXATE SODIUM [Suspect]
  4. VITAMIN B-12 [Suspect]
     Indication: NAUSEA
     Route: 058
  5. NAPROSYN [Concomitant]
     Indication: PRODUCT USED FOR UNKNOWN INDICATION
     Route: 048
  6. NEXIUM [Concomitant]
     Indication: GASTRIC DISORDER
     Dosage: 40 MG ONCE DAILY AS NEEDED
     Route: 048
  7. PREVACID [Concomitant]
     Indication: GASTRIC DISORDER
     Dosage: 1 TABLET EVERY AM
     Route: 048
  8. PREDNISONE [Concomitant]
     Indication: PRODUCT USED FOR UNKNOWN INDICATION
     Route: 048
  9. DIDROCAL [Concomitant]
     Indication: BONE DISORDER
     Route: 048
  10. CALCIUM [Concomitant]
     Indication: BONE DISORDER
     Route: 048
  11. MELOXICAM [Concomitant]
     Indication: ARTHRITIS
     Route: 048
  12. TYLENOL W/ CODEINE NO. 3 [Concomitant]
     Indication: PAIN
     Route: 048

REACTIONS (8)
  - ALOPECIA [None]
  - ARTHRALGIA [None]
  - HEPATIC ENZYME INCREASED [None]
  - HYPERTENSION [None]
  - JOINT SWELLING [None]
  - NAUSEA [None]
  - RASH PRURITIC [None]
  - SYNOVIAL CYST [None]
